FAERS Safety Report 5266675-2 (Version None)
Quarter: 2007Q1

REPORT INFORMATION
  Report Type: 
  Country: None (occurrence: None)
  Receive Date: 20070312
  Receipt Date: 20070228
  Transmission Date: 20070707
  Serious: Yes (Other)
  Sender: FDA-Public Use
  Company Number: T200700204

PATIENT
  Age: 72 Year
  Sex: Male
  Weight: 48 kg

DRUGS (3)
  1. OPTIRAY 320 [Suspect]
     Indication: COMPUTERISED TOMOGRAM ABDOMEN
     Dosage: 100 ML, SINGLE, INTRAVENOUS
     Route: 042
     Dates: start: 20070214, end: 20070214
  2. ISOSORBIDE DINITRATE (ISOSORBIDE DINITRATE) TAPE (INCLUDING POULTICE) [Concomitant]
  3. HEPARIN [Concomitant]

REACTIONS (7)
  - ARTERIOSPASM CORONARY [None]
  - BRADYCARDIA [None]
  - CONVULSION [None]
  - DEPRESSED LEVEL OF CONSCIOUSNESS [None]
  - FLUSHING [None]
  - HYPERSENSITIVITY [None]
  - SHOCK [None]
